FAERS Safety Report 23007558 (Version 2)
Quarter: 2023Q4

REPORT INFORMATION
  Report Type: Spontaneous
  Country: CA (occurrence: CA)
  Receive Date: 20230929
  Receipt Date: 20231023
  Transmission Date: 20240109
  Serious: No
  Sender: FDA-Public Use
  Company Number: CA-JNJFOC-20230932886

PATIENT

DRUGS (3)
  1. SIMPONI [Suspect]
     Active Substance: GOLIMUMAB
     Indication: Ankylosing spondylitis
     Dosage: STRENGTH: 50.00 MG / 0.50 ML
     Route: 065
  2. SIMPONI [Suspect]
     Active Substance: GOLIMUMAB
     Route: 065
  3. SIMPONI [Suspect]
     Active Substance: GOLIMUMAB

REACTIONS (4)
  - Device malfunction [Unknown]
  - Drug ineffective [Unknown]
  - Off label use [Unknown]
  - Product dose omission issue [Unknown]
